FAERS Safety Report 24760312 (Version 3)
Quarter: 2025Q1

REPORT INFORMATION
  Report Type: Spontaneous
  Country: CN (occurrence: CN)
  Receive Date: 20241220
  Receipt Date: 20250107
  Transmission Date: 20250409
  Serious: Yes (Other)
  Sender: FERRING
  Company Number: CN-FERRINGPH-2024FE06728

PATIENT

DRUGS (1)
  1. PICOLAX (ANHYDROUS CITRIC ACID\MAGNESIUM OXIDE\SODIUM PICOSULFATE) [Suspect]
     Active Substance: ANHYDROUS CITRIC ACID\MAGNESIUM OXIDE\SODIUM PICOSULFATE
     Indication: Bowel preparation
     Dosage: 1 DOSAGE FORM, 1 TIME DAILY
     Route: 048
     Dates: start: 20241125, end: 20241126

REACTIONS (7)
  - Drug eruption [Not Recovered/Not Resolved]
  - Oropharyngeal pain [Recovering/Resolving]
  - Haemoptysis [Recovering/Resolving]
  - Throat irritation [Recovering/Resolving]
  - Pharyngeal hypoaesthesia [Recovering/Resolving]
  - Product label issue [Unknown]
  - Wrong technique in product usage process [Recovered/Resolved]

NARRATIVE: CASE EVENT DATE: 20241125
